FAERS Safety Report 22045905 (Version 2)
Quarter: 2023Q2

REPORT INFORMATION
  Report Type: Spontaneous
  Country: US (occurrence: US)
  Receive Date: 20230228
  Receipt Date: 20230420
  Transmission Date: 20230721
  Serious: Yes (Death, Other)
  Sender: FDA-Public Use
  Company Number: US-PFIZER INC-PV202200032431

PATIENT

DRUGS (2)
  1. HEPARIN SODIUM [Suspect]
     Active Substance: HEPARIN SODIUM
     Indication: Atrial fibrillation
     Dosage: 500 ML (25,000 UNITS/500ML WITHIN 1 HOUR)
     Route: 042
  2. HEPARIN SODIUM [Suspect]
     Active Substance: HEPARIN SODIUM
     Dosage: UNK (25,000 UNITS/ 250 ML)

REACTIONS (5)
  - Cardiac arrest [Fatal]
  - Off label use [Unknown]
  - Intentional product use issue [Unknown]
  - Wrong product administered [Unknown]
  - Hypotension [Unknown]
